FAERS Safety Report 15082996 (Version 1)
Quarter: 2018Q2

REPORT INFORMATION
  Report Type: Spontaneous
  Country: US (occurrence: US)
  Receive Date: 20180628
  Receipt Date: 20180628
  Transmission Date: 20180711
  Serious: Yes (Hospitalization)
  Sender: FDA-Public Use
  Company Number: US-JNJFOC-20180628931

PATIENT
  Age: 64 Year
  Sex: Female

DRUGS (1)
  1. GOLIMUMAB [Suspect]
     Active Substance: GOLIMUMAB
     Indication: RHEUMATOID ARTHRITIS
     Route: 058

REACTIONS (1)
  - Thrombotic thrombocytopenic purpura [Recovering/Resolving]
